FAERS Safety Report 8876946 (Version 1)
Quarter: 2012Q4

REPORT INFORMATION
  Report Type: 
  Country: FR (occurrence: FR)
  Receive Date: 20121030
  Receipt Date: 20121030
  Transmission Date: 20130627
  Serious: Yes (Death, Hospitalization)
  Sender: FDA-Public Use
  Company Number: FR-ARROW-2012-18213

PATIENT
  Age: 17 Year
  Sex: Male

DRUGS (3)
  1. OMEPRAZOLE (UNKNOWN) [Suspect]
     Indication: GASTROOESOPHAGEAL REFLUX DISEASE
     Dosage: UNK
     Route: 065
  2. TACROLIMUS (UNKNOWN) [Suspect]
     Indication: IMMUNOSUPPRESSION
     Dosage: 7 mg, bid
     Route: 065
  3. TACROLIMUS (UNKNOWN) [Suspect]
     Dosage: 9 mg, bid

REACTIONS (3)
  - Drug level increased [Recovered/Resolved]
  - Nephropathy toxic [Recovered/Resolved]
  - Drug interaction [Recovered/Resolved]
